FAERS Safety Report 25329151 (Version 1)
Quarter: 2025Q2

REPORT INFORMATION
  Report Type: Spontaneous
  Country: US (occurrence: US)
  Receive Date: 20250519
  Receipt Date: 20250519
  Transmission Date: 20250717
  Serious: No
  Sender: CSL BEHRING
  Company Number: US-BEH-2025204947

PATIENT
  Age: 67 Year
  Sex: Female

DRUGS (7)
  1. HIZENTRA [Suspect]
     Active Substance: HUMAN IMMUNOGLOBULIN G
     Indication: Immunodeficiency common variable
     Route: 065
  2. ALBUTEROL [Concomitant]
     Active Substance: ALBUTEROL
  3. DULOXETINE [Concomitant]
     Active Substance: DULOXETINE
  4. HUMIRA [Concomitant]
     Active Substance: ADALIMUMAB
  5. LISINOPRIL [Concomitant]
     Active Substance: LISINOPRIL
  6. PREGABALIN [Concomitant]
     Active Substance: PREGABALIN
  7. SINGULAIR [Concomitant]
     Active Substance: MONTELUKAST SODIUM

REACTIONS (1)
  - Depression [Unknown]
